FAERS Safety Report 14603938 (Version 1)
Quarter: 2018Q1

REPORT INFORMATION
  Report Type: Spontaneous
  Country: US (occurrence: US)
  Receive Date: 20180305
  Receipt Date: 20180305
  Transmission Date: 20180509
  Serious: Yes (Hospitalization)
  Sender: FDA-Public Use
  Company Number: None

PATIENT
  Age: 45 Year
  Sex: Female

DRUGS (22)
  1. STELARA [Suspect]
     Active Substance: USTEKINUMAB
     Indication: GASTROOESOPHAGEAL REFLUX DISEASE
     Dosage: ?          OTHER FREQUENCY:Q8W;?
     Route: 058
     Dates: start: 20171116
  2. LAMOTRIGINE. [Concomitant]
     Active Substance: LAMOTRIGINE
  3. GABAPENTIN. [Concomitant]
     Active Substance: GABAPENTIN
  4. ZINC SULFATE [Concomitant]
     Active Substance: ZINC SULFATE\ZINC SULFATE ANHYDROUS
  5. VENTOLIN [Concomitant]
     Active Substance: ALBUTEROL SULFATE
  6. FOLIC ACID. [Concomitant]
     Active Substance: FOLIC ACID
  7. VITAMIN D, CHOLESTYRAM [Concomitant]
  8. BACLOFEN. [Concomitant]
     Active Substance: BACLOFEN
  9. OXYCODONE [Concomitant]
     Active Substance: OXYCODONE
  10. PREPLUS [Concomitant]
     Active Substance: .ALPHA.-TOCOPHEROL ACETATE, DL-\.BETA.-CAROTENE\ASCORBIC ACID\CALCIUM CARBONATE\CHOLECALCIFEROL\CUPRIC OXIDE\CYANOCOBALAMIN\FERROUS FUMARATE\FOLIC ACID\NIACINAMIDE\PYRIDOXINE HYDROCHLORIDE\RIBOFLAVIN\THIAMINE MONONITRATE\ZINC OXIDE
  11. PRAZOSIN. [Concomitant]
     Active Substance: PRAZOSIN
  12. SYMBICORT [Concomitant]
     Active Substance: BUDESONIDE\FORMOTEROL FUMARATE DIHYDRATE
  13. VITAMIN B6 [Concomitant]
     Active Substance: PYRIDOXINE HYDROCHLORIDE
  14. LINZESS [Concomitant]
     Active Substance: LINACLOTIDE
  15. CALCIUM D [Concomitant]
     Active Substance: CALCIUM\VITAMIN D
  16. MAGNESIUM [Concomitant]
     Active Substance: MAGNESIUM
  17. FUROSEMIDE. [Concomitant]
     Active Substance: FUROSEMIDE
  18. OMEPRAZOLE. [Concomitant]
     Active Substance: OMEPRAZOLE
  19. SUCRAFATE [Concomitant]
     Active Substance: SUCRALFATE
  20. CYANOBALAMIN INJ [Concomitant]
  21. VITAMIN B1 [Concomitant]
     Active Substance: THIAMINE HYDROCHLORIDE
  22. POT CL MICRO [Concomitant]

REACTIONS (1)
  - Surgery [None]

NARRATIVE: CASE EVENT DATE: 20180205
